FAERS Safety Report 9643976 (Version 2)
Quarter: 2013Q4

REPORT INFORMATION
  Report Type: Report from Study
  Country: DE (occurrence: DE)
  Receive Date: 20131024
  Receipt Date: 20131024
  Transmission Date: 20140711
  Serious: Yes (Death, Hospitalization)
  Sender: FDA-Public Use
  Company Number: DE-TEVA-390047GER

PATIENT
  Age: 28 Year
  Sex: Female
  Weight: 63 kg

DRUGS (9)
  1. MYOCET [Suspect]
     Indication: BREAST CANCER
     Route: 042
     Dates: start: 20121206
  2. PACLITAXEL [Suspect]
     Indication: BREAST CANCER
     Route: 042
     Dates: start: 20121206, end: 20130302
  3. BEVACIZUMAB [Suspect]
     Indication: BREAST CANCER
     Route: 042
     Dates: start: 20121206, end: 20130302
  4. BISOPROLOL [Concomitant]
     Dates: start: 20130206, end: 20130217
  5. RAMIPRIL [Concomitant]
     Dates: start: 20130206, end: 20130217
  6. TAVEGIL [Concomitant]
     Route: 042
     Dates: start: 20121206, end: 20130221
  7. SOSTRIL [Concomitant]
     Route: 042
     Dates: start: 20121206, end: 20130221
  8. GRANISETRON [Concomitant]
     Route: 042
     Dates: start: 20121206, end: 20130221
  9. DEXAMETHASON [Concomitant]
     Dosage: 8 MG DAYS 0-4, I.V. + P.O.
     Route: 042
     Dates: start: 20121206, end: 20130221

REACTIONS (2)
  - Febrile neutropenia [Fatal]
  - Pneumonia [Unknown]
